FAERS Safety Report 9558571 (Version 2)
Quarter: 2013Q3

REPORT INFORMATION
  Report Type: Report from Study
  Country: CA (occurrence: CA)
  Receive Date: 20130926
  Receipt Date: 20130926
  Transmission Date: 20140515
  Serious: Yes (Hospitalization)
  Sender: FDA-Public Use
  Company Number: PHHY2013CA104945

PATIENT
  Sex: Female

DRUGS (10)
  1. CLOZARIL [Suspect]
     Indication: SCHIZOAFFECTIVE DISORDER
     Dosage: 150 Q AM 225 Q HS
     Route: 048
     Dates: start: 20081111
  2. TYLENOL [Concomitant]
     Dosage: UNK UKN, UNK
  3. ATROPINE [Concomitant]
     Dosage: UNK UKN, UNK
  4. DULCOLAX [Concomitant]
     Dosage: UNK UKN, UNK
  5. COLECALCIFEROL [Concomitant]
     Dosage: UNK UKN, UNK
  6. LACTULOSE [Concomitant]
     Dosage: UNK UKN, UNK
  7. ATIVAN [Concomitant]
     Dosage: UNK UKN, UNK
  8. VENTOLIN                           /00942701/ [Concomitant]
     Dosage: UNK UKN, UNK
  9. HALOPERIDOL [Concomitant]
     Dosage: UNK UKN, QHS
  10. VALPROIC ACID [Concomitant]
     Dosage: UNK UKN, TID
     Route: 048

REACTIONS (2)
  - Gastrointestinal haemorrhage [Unknown]
  - Pneumonia [Unknown]
